FAERS Safety Report 9643229 (Version 2)
Quarter: 2013Q4

REPORT INFORMATION
  Report Type: Spontaneous
  Country: JP (occurrence: JP)
  Receive Date: 20131024
  Receipt Date: 20131106
  Transmission Date: 20140711
  Serious: Yes (Hospitalization)
  Sender: FDA-Public Use
  Company Number: JP-VERTEX PHARMACEUTICALS INC-2013-010629

PATIENT
  Age: 46 Year
  Sex: Male

DRUGS (9)
  1. TELAVIC [Suspect]
     Indication: CHRONIC HEPATITIS C
     Dosage: 1500 MG, QD
     Route: 048
     Dates: start: 20131011, end: 20131014
  2. RIBAVIRIN [Concomitant]
     Dosage: 800 MG, QD
     Route: 048
     Dates: start: 20131011, end: 20131014
  3. PEGINTERFERON ALFA-2B [Concomitant]
     Dosage: 1.5 ?G/KG, QW
     Route: 058
     Dates: start: 20131011, end: 20131014
  4. MICAMLO [Concomitant]
     Dosage: UNK
     Route: 048
  5. ZYLORIC [Concomitant]
     Dosage: 100 MG, QD
     Route: 048
  6. CYMBALTA [Concomitant]
     Dosage: 20 MG, QD
     Route: 048
  7. ETIZOLAM [Concomitant]
     Dosage: 0.5 MG/QD, PRN
     Route: 048
     Dates: start: 20131011
  8. NEXIUM [Concomitant]
     Dosage: 10 MG/QD, PRN
     Route: 048
     Dates: start: 20131011, end: 20131014
  9. LOXONIN [Concomitant]
     Dosage: 60 MG/QD, PRN
     Route: 048
     Dates: start: 20131011, end: 20131014

REACTIONS (1)
  - Pancreatitis acute [Recovered/Resolved]
